FAERS Safety Report 4673302-1 (Version None)
Quarter: 2005Q2

REPORT INFORMATION
  Report Type: 
  Country: None (occurrence: None)
  Receive Date: 20050525
  Receipt Date: 20050520
  Transmission Date: 20051028
  Serious: Yes (Other)
  Sender: FDA-Public Use
  Company Number: PHBS2005CA07370

PATIENT
  Sex: Male

DRUGS (1)
  1. TRILEPTAL [Suspect]
     Route: 048

REACTIONS (1)
  - PANCYTOPENIA [None]
